FAERS Safety Report 21084610 (Version 1)
Quarter: 2022Q3

REPORT INFORMATION
  Report Type: Spontaneous
  Country: US (occurrence: US)
  Receive Date: 20220714
  Receipt Date: 20220714
  Transmission Date: 20221027
  Serious: No
  Sender: FDA-Public Use
  Company Number: US-JAZZ-2022-US-020970

PATIENT
  Sex: Male

DRUGS (7)
  1. EPIDIOLEX [Suspect]
     Active Substance: CANNABIDIOL
     Indication: Partial seizures
     Dosage: 5 MILLILITER, BID
     Route: 048
  2. VIMPAT [Concomitant]
     Active Substance: LACOSAMIDE
     Dosage: UNK
  3. ONFI [Concomitant]
     Active Substance: CLOBAZAM
     Dosage: UNK
  4. LYRICA [Concomitant]
     Active Substance: PREGABALIN
     Dosage: UNK
  5. KEPPRA XR [Concomitant]
     Active Substance: LEVETIRACETAM
     Dosage: UNK
  6. CLONAZEPAM [Concomitant]
     Active Substance: CLONAZEPAM
     Dosage: UNK
  7. VITAMIN B12 [Concomitant]
     Active Substance: CYANOCOBALAMIN
     Dosage: UNK

REACTIONS (2)
  - Somnolence [Not Recovered/Not Resolved]
  - Off label use [Unknown]
